FAERS Safety Report 10580004 (Version 3)
Quarter: 2015Q4

REPORT INFORMATION
  Report Type: Spontaneous
  Country: US (occurrence: US)
  Receive Date: 20141112
  Receipt Date: 20151112
  Transmission Date: 20160304
  Serious: Yes (Hospitalization, Other)
  Sender: FDA-Public Use
  Company Number: US-009507513-1411USA005318

PATIENT
  Sex: Female
  Weight: 56.46 kg

DRUGS (15)
  1. VITAMIN D [Concomitant]
     Active Substance: CHOLECALCIFEROL
     Dosage: 2000 IU, QD
     Dates: start: 2000
  2. OMEGA-3 MARINE TRIGLYCERIDES [Concomitant]
     Active Substance: FISH OIL
     Dosage: 1000 MG, QD
     Dates: start: 2000
  3. SELENIUM (UNSPECIFIED) [Concomitant]
     Dosage: 200 MICROGRAM, TWICE WEEKLY
     Dates: start: 2000
  4. THIAMINE. [Concomitant]
     Active Substance: THIAMINE
     Dosage: 100 MG, QD
     Dates: start: 2000
  5. ZINC (UNSPECIFIED) [Concomitant]
     Dosage: 25 MG, TWICE WEEKLY
     Dates: start: 2000
  6. WELLBUTRIN [Concomitant]
     Active Substance: BUPROPION HYDROCHLORIDE
     Indication: DEPRESSION
     Dosage: UNK
     Dates: start: 2002
  7. ZOLOFT [Concomitant]
     Active Substance: SERTRALINE HYDROCHLORIDE
     Indication: DEPRESSION
     Dosage: UNK
     Dates: start: 2000, end: 2008
  8. FOSAMAX [Suspect]
     Active Substance: ALENDRONATE SODIUM
     Indication: OSTEOPOROSIS
     Dosage: 70 MG, QW
     Route: 048
     Dates: start: 2002, end: 2010
  9. ALENDRONATE SODIUM. [Suspect]
     Active Substance: ALENDRONATE SODIUM
     Indication: OSTEOPOROSIS
     Dosage: 70 MG, QW
     Route: 048
     Dates: start: 2008, end: 2010
  10. VITAMINS (UNSPECIFIED) [Concomitant]
     Active Substance: VITAMINS
     Dosage: 1 DF, QD
     Dates: start: 2000
  11. ASCORBIC ACID. [Concomitant]
     Active Substance: ASCORBIC ACID
     Dosage: 1000 MG, TWICE WEEKLY
     Dates: start: 2000
  12. EVENING PRIMROSE OIL [Concomitant]
     Active Substance: EVENING PRIMROSE OIL
     Dosage: 500 MG, THREE TIMES/WEEK
     Dates: start: 2000
  13. TRAZODONE HYDROCHLORIDE. [Concomitant]
     Active Substance: TRAZODONE HYDROCHLORIDE
     Indication: DEPRESSION
     Dosage: UNK
     Dates: start: 1986
  14. XANTHOPHYLL [Concomitant]
     Dosage: 40 MG, QD
     Dates: start: 2000
  15. HORMONES (UNSPECIFIED) [Concomitant]
     Active Substance: UNSPECIFIED INGREDIENT
     Dosage: UNK
     Dates: start: 2000, end: 2014

REACTIONS (34)
  - Osteopenia [Unknown]
  - Atrophic vulvovaginitis [Unknown]
  - Urge incontinence [Unknown]
  - Ligament sprain [Unknown]
  - Closed fracture manipulation [Unknown]
  - Spinal osteoarthritis [Unknown]
  - Oestrogen deficiency [Unknown]
  - Neck pain [Not Recovered/Not Resolved]
  - Headache [Unknown]
  - Foot fracture [Unknown]
  - Pulmonary mass [Unknown]
  - Fracture reduction [Unknown]
  - Ligament sprain [Recovering/Resolving]
  - Colitis [Unknown]
  - Foot deformity [Recovered/Resolved]
  - Dry skin [Unknown]
  - Osteoarthritis [Unknown]
  - Asthma [Unknown]
  - Upper limb fracture [Unknown]
  - Fibula fracture [Recovered/Resolved]
  - Periodontal operation [Unknown]
  - Excoriation [Unknown]
  - Back pain [Unknown]
  - Fibula fracture [Unknown]
  - Lumbar vertebral fracture [Unknown]
  - Hypertension [Unknown]
  - Alopecia [Unknown]
  - Arthralgia [Unknown]
  - Femur fracture [Recovered/Resolved]
  - Ligament sprain [Recovered/Resolved]
  - Rib fracture [Recovered/Resolved]
  - Toe operation [Unknown]
  - Liver function test abnormal [Unknown]
  - Joint injury [Unknown]

NARRATIVE: CASE EVENT DATE: 2002
